FAERS Safety Report 4940403-X (Version None)
Quarter: 2006Q1

REPORT INFORMATION
  Report Type: 
  Country: None (occurrence: None)
  Receive Date: 20060310
  Receipt Date: 20050228
  Transmission Date: 20060701
  Serious: Yes (Hospitalization, Other)
  Sender: FDA-Public Use
  Company Number: US-MERCK-0503USA00270

PATIENT
  Age: 66 Year
  Sex: Male
  Weight: 107 kg

DRUGS (4)
  1. VIOXX [Suspect]
     Indication: ARTHRITIS
     Route: 048
     Dates: start: 19990101, end: 20030101
  2. VIOXX [Suspect]
     Route: 048
     Dates: start: 19990101, end: 20030101
  3. ADVIL [Suspect]
     Route: 065
  4. ALEVE [Suspect]
     Route: 065

REACTIONS (19)
  - ABDOMINAL DISCOMFORT [None]
  - ANXIETY [None]
  - AORTIC VALVE CALCIFICATION [None]
  - BACK PAIN [None]
  - CARDIAC FAILURE CONGESTIVE [None]
  - CAROTID ARTERY STENOSIS [None]
  - CAROTID BRUIT [None]
  - CATARACT [None]
  - CEREBROVASCULAR ACCIDENT [None]
  - CHEST PAIN [None]
  - CORONARY ARTERY DISEASE [None]
  - DILATATION ATRIAL [None]
  - HAEMORRHOIDS [None]
  - HYPOKALAEMIA [None]
  - LUMBAR RADICULOPATHY [None]
  - MITRAL VALVE CALCIFICATION [None]
  - MYOCARDIAL INFARCTION [None]
  - PNEUMONIA [None]
  - VENTRICULAR HYPERTROPHY [None]
